FAERS Safety Report 8596127-3 (Version None)
Quarter: 2012Q3

REPORT INFORMATION
  Report Type: 
  Country: None (occurrence: None)
  Receive Date: 20120801
  Receipt Date: 20120720
  Transmission Date: 20120928
  Serious: Yes (Other)
  Sender: FDA-Public Use
  Company Number: 2012MA009278

PATIENT
  Age: 35 Year
  Sex: Male

DRUGS (2)
  1. FLUOXETINE HYDROCHLORIDE [Suspect]
     Indication: DEPRESSION
     Dosage: 20 MG;PO
     Route: 048
     Dates: start: 20120610, end: 20120612
  2. PAROXETINE HYDROCHLORIDE [Suspect]
     Indication: DEPRESSION
     Dosage: 30 MG; PO
     Route: 048
     Dates: end: 20120610

REACTIONS (9)
  - MUSCULAR WEAKNESS [None]
  - COGNITIVE DISORDER [None]
  - WITHDRAWAL SYNDROME [None]
  - HYPOAESTHESIA [None]
  - EMOTIONAL DISTRESS [None]
  - ANXIETY [None]
  - DIZZINESS [None]
  - DYSARTHRIA [None]
  - FEAR [None]
